FAERS Safety Report 19200320 (Version 1)
Quarter: 2021Q2

REPORT INFORMATION
  Report Type: Spontaneous
  Country: US (occurrence: US)
  Receive Date: 20210430
  Receipt Date: 20210430
  Transmission Date: 20210717
  Serious: No
  Sender: FDA-Public Use
  Company Number: None

PATIENT
  Age: 72 Year
  Sex: Female
  Weight: 66.6 kg

DRUGS (1)
  1. RECLAST [Suspect]
     Active Substance: ZOLEDRONIC ACID
     Indication: OSTEOPOROSIS
     Dosage: ?          QUANTITY:1 INJECTION(S);?
     Route: 042

REACTIONS (8)
  - Wrong technique in device usage process [None]
  - Insomnia [None]
  - Vomiting [None]
  - Diarrhoea [None]
  - Nasopharyngitis [None]
  - Chills [None]
  - Pain in extremity [None]
  - Abdominal discomfort [None]

NARRATIVE: CASE EVENT DATE: 20210421
